FAERS Safety Report 5716149-7 (Version None)
Quarter: 2008Q2

REPORT INFORMATION
  Report Type: 
  Country: None (occurrence: None)
  Receive Date: 20080423
  Receipt Date: 20080416
  Transmission Date: 20081010
  Serious: No
  Sender: FDA-Public Use
  Company Number: APP200800301

PATIENT
  Age: 75 Year
  Sex: Female
  Weight: 96.1626 kg

DRUGS (9)
  1. HEPARIN SODIUM INJECTION [Suspect]
     Indication: CORONARY ARTERY BYPASS
     Dosage: 23000 USP UNITS, OVER 60-90 SECONDS, INTRAVENOUS
     Route: 042
     Dates: start: 20080409, end: 20080409
  2. HEPARIN SODIUM [Suspect]
  3. MULTIPLE MEDICATIONS [Concomitant]
  4. SUFENTA [Concomitant]
  5. ETOMIDATE [Concomitant]
  6. PROPOFOL [Concomitant]
  7. SUCCINYLCHOLINE CHLORIDE [Concomitant]
  8. INSULIN (INSULIN) [Concomitant]
  9. PRECEDEX [Concomitant]

REACTIONS (1)
  - HYPERTENSION [None]
